FAERS Safety Report 7294200-3 (Version None)
Quarter: 2011Q1

REPORT INFORMATION
  Report Type: 
  Country: None (occurrence: None)
  Receive Date: 20110215
  Receipt Date: 20110203
  Transmission Date: 20110831
  Serious: Yes (Hospitalization, Other)
  Sender: FDA-Public Use
  Company Number: US-ELI_LILLY_AND_COMPANY-US201011002691

PATIENT
  Sex: Female
  Weight: 52.608 kg

DRUGS (9)
  1. ASPIRIN [Concomitant]
     Dosage: 81 MG, DAILY (1/D)
     Route: 065
     Dates: start: 20101015
  2. LEXAPRO [Concomitant]
     Dosage: UNK, UNKNOWN
     Route: 065
  3. FORTEO [Suspect]
     Indication: OSTEOPOROSIS
     Dosage: 20 UG, DAILY (1/D)
     Route: 058
     Dates: start: 20090701
  4. CRESTOR [Concomitant]
     Dosage: UNK, UNKNOWN
     Route: 065
     Dates: start: 20101015
  5. CALCIUM [Concomitant]
     Dosage: 600 MG, DAILY (1/D)
     Route: 065
     Dates: start: 20090701
  6. PLAVIX [Concomitant]
     Dosage: UNK, UNKNOWN
     Route: 065
     Dates: start: 20101015
  7. FAMOTIDINE [Concomitant]
     Dosage: UNK, UNKNOWN
     Route: 065
  8. METOPROLOL [Concomitant]
     Dosage: UNK, UNKNOWN
     Route: 065
     Dates: start: 20101015
  9. VITAMIN D [Concomitant]
     Dosage: 2 TABLETS , DAILY (1/D)
     Route: 065

REACTIONS (4)
  - CORONARY ARTERY OCCLUSION [None]
  - SUPRAVENTRICULAR EXTRASYSTOLES [None]
  - VENTRICULAR EXTRASYSTOLES [None]
  - VITAMIN D DECREASED [None]
